FAERS Safety Report 6740595-6 (Version None)
Quarter: 2010Q2

REPORT INFORMATION
  Report Type: 
  Country: None (occurrence: None)
  Receive Date: 20100525
  Receipt Date: 20100512
  Transmission Date: 20101027
  Serious: Yes (Hospitalization)
  Sender: FDA-Public Use
  Company Number: US-WATSON-2010-06407

PATIENT
  Sex: Male
  Weight: 77.098 kg

DRUGS (9)
  1. INFED [Suspect]
     Indication: ANAEMIA
     Dosage: RECEIVED 10-20 MG TOTAL (1-2 ML OF IRON MIXED WITH SALINE)
     Route: 042
     Dates: start: 20100512, end: 20100512
  2. INFED [Suspect]
     Dosage: RECEVIED { 1/2 DOSE, ABOUT 2 ML OF INFUSION (100 MG/5-10 MIN DILUTED WITH 500 CC SALINE BAG RUNNING)
     Dates: start: 20100506, end: 20100506
  3. ENALAPRIL [Concomitant]
     Indication: DRUG USE FOR UNKNOWN INDICATION
     Dosage: UNK
     Route: 065
  4. GLIPIZIDE [Concomitant]
     Indication: DRUG USE FOR UNKNOWN INDICATION
     Dosage: UNK
     Route: 065
  5. HYDRALAZINE HCL [Concomitant]
     Indication: DRUG USE FOR UNKNOWN INDICATION
     Dosage: UNK
     Route: 065
  6. METFORMIN HYDROCHLORIDE [Concomitant]
     Indication: DRUG USE FOR UNKNOWN INDICATION
     Dosage: UNK
     Route: 065
  7. IMDUR [Concomitant]
     Indication: DRUG USE FOR UNKNOWN INDICATION
     Dosage: UNK
     Route: 065
  8. PROTONIX                           /01263201/ [Concomitant]
     Indication: DRUG USE FOR UNKNOWN INDICATION
     Dosage: UNK
     Route: 065
  9. SPIRONOLACTONE [Concomitant]
     Indication: DRUG USE FOR UNKNOWN INDICATION
     Dosage: UNK
     Route: 065

REACTIONS (11)
  - BLOOD PRESSURE INCREASED [None]
  - CHEST PAIN [None]
  - CIRCULATORY COLLAPSE [None]
  - DIZZINESS [None]
  - HEART RATE DECREASED [None]
  - HEART RATE INCREASED [None]
  - LOSS OF CONSCIOUSNESS [None]
  - NAUSEA [None]
  - PULSE ABSENT [None]
  - RESPIRATORY RATE DECREASED [None]
  - SKIN DISCOLOURATION [None]
